FAERS Safety Report 4871944-1 (Version None)
Quarter: 2005Q4

REPORT INFORMATION
  Report Type: 
  Country: None (occurrence: None)
  Receive Date: 20051230
  Receipt Date: 20051221
  Transmission Date: 20060501
  Serious: Yes (Death, Hospitalization)
  Sender: FDA-Public Use
  Company Number: 2005170671

PATIENT
  Age: 42 Year
  Sex: Female
  Weight: 70 kg

DRUGS (14)
  1. ZITHROMAX [Suspect]
     Indication: ILL-DEFINED DISORDER
     Dosage: 1500 MG (500 MG, 3 IN 1 D), ORAL
     Route: 048
     Dates: start: 20050817, end: 20050819
  2. DIFLUCAN [Suspect]
     Indication: ILL-DEFINED DISORDER
     Dates: start: 20050801, end: 20050801
  3. HERCEPTIN [Suspect]
     Indication: NEOPLASM MALIGNANT
     Dosage: 300 MG (300 MG), INTRAVENOUS
     Route: 042
     Dates: start: 20050819, end: 20050819
  4. TAXOTERE [Suspect]
     Indication: NEOPLASM MALIGNANT
     Dosage: INTRAVENOUS
     Route: 042
     Dates: start: 20050506, end: 20050805
  5. ROCEPHIN [Suspect]
     Indication: ILL-DEFINED DISORDER
     Dosage: 2 GRAM (2 GRAM), INTRAVENOUS
     Route: 042
     Dates: start: 20050823, end: 20050827
  6. HYOSCINE HBR HYT [Concomitant]
  7. BENERVA (THIAMINE HYDROCHLORIDE) [Concomitant]
  8. FRAGMIN [Concomitant]
  9. METHYLPREDNISOLONE [Concomitant]
  10. DIGOXIN [Concomitant]
  11. MORPHINE [Concomitant]
  12. CETIRIZINE HCL [Concomitant]
  13. LASIX [Concomitant]
  14. NAVOBAN (TROPISETRON HYDROCHLORIDE) [Concomitant]

REACTIONS (9)
  - ALVEOLITIS ALLERGIC [None]
  - DYSPNOEA [None]
  - HYPERGLYCAEMIA [None]
  - INFECTION [None]
  - OEDEMA [None]
  - PULMONARY ARTERIAL PRESSURE INCREASED [None]
  - RESPIRATORY ACIDOSIS [None]
  - TACHYCARDIA [None]
  - TRICUSPID VALVE INCOMPETENCE [None]
